FAERS Safety Report 6734557-2 (Version None)
Quarter: 2010Q2

REPORT INFORMATION
  Report Type: 
  Country: None (occurrence: None)
  Receive Date: 20100520
  Receipt Date: 20100511
  Transmission Date: 20101027
  Serious: Yes (Hospitalization)
  Sender: FDA-Public Use
  Company Number: BR-AMGEN-QUU412502

PATIENT
  Sex: Female
  Weight: 55 kg

DRUGS (4)
  1. ENBREL [Suspect]
     Indication: RHEUMATOID ARTHRITIS
     Route: 058
     Dates: start: 20100419, end: 20100503
  2. PREDNISONE TAB [Concomitant]
     Dosage: 5 MG EVERY
  3. ARAVA [Concomitant]
     Dosage: 20 MG EVERY
  4. LEVOTHYROXINE SODIUM [Concomitant]
     Dosage: 1000 UG EVERY

REACTIONS (10)
  - DIZZINESS [None]
  - HAEMATEMESIS [None]
  - HEADACHE [None]
  - HYPERTENSIVE CRISIS [None]
  - HYPOAESTHESIA [None]
  - MALAISE [None]
  - NAUSEA [None]
  - PALLOR [None]
  - VISUAL IMPAIRMENT [None]
  - VOMITING [None]
